FAERS Safety Report 21038148 (Version 1)
Quarter: 2022Q3

REPORT INFORMATION
  Report Type: Report from Study
  Country: MX (occurrence: MX)
  Receive Date: 20220704
  Receipt Date: 20220704
  Transmission Date: 20221027
  Serious: No
  Sender: FDA-Public Use
  Company Number: MX-UCBSA-2022036945

PATIENT
  Sex: Male
  Weight: 86 kg

DRUGS (5)
  1. ROTIGOTINE [Suspect]
     Active Substance: ROTIGOTINE
     Indication: Parkinson^s disease
     Dosage: 4 MILLIGRAM, ONCE DAILY (QD)
     Route: 062
  2. ROTIGOTINE [Suspect]
     Active Substance: ROTIGOTINE
     Dosage: 6 OR 10MG
     Route: 062
     Dates: end: 20220604
  3. RIVAROXABAN [Concomitant]
     Active Substance: RIVAROXABAN
     Indication: Cardiovascular disorder
  4. MAZDA [Concomitant]
     Indication: Antidepressant therapy
  5. CRONOCAPS [Concomitant]
     Indication: Sleep disorder

REACTIONS (3)
  - Product adhesion issue [Unknown]
  - Therapy interrupted [Unknown]
  - Inability to afford medication [Unknown]
